FAERS Safety Report 5265996-7 (Version None)
Quarter: 2007Q1

REPORT INFORMATION
  Report Type: 
  Country: None (occurrence: None)
  Receive Date: 20070312
  Receipt Date: 20070312
  Transmission Date: 20070707
  Serious: Yes (Life-Threatening)
  Sender: FDA-Public Use
  Company Number: None

PATIENT
  Age: 21 Year
  Sex: Female
  Weight: 62.5964 kg

DRUGS (1)
  1. TRI-PREVIFEM [Suspect]
     Indication: CONTRACEPTION
     Dosage: 1 DAILY PO
     Route: 048
     Dates: start: 20070201

REACTIONS (4)
  - CHEST DISCOMFORT [None]
  - NAUSEA [None]
  - TENSION HEADACHE [None]
  - VOMITING [None]
